FAERS Safety Report 6635690-6 (Version None)
Quarter: 2010Q1

REPORT INFORMATION
  Report Type: 
  Country: None (occurrence: None)
  Receive Date: 20100312
  Receipt Date: 20100312
  Transmission Date: 20100710
  Serious: Yes (Hospitalization)
  Sender: FDA-Public Use
  Company Number: None

PATIENT
  Age: 78 Year
  Sex: Male
  Weight: 93 kg

DRUGS (2)
  1. SIMVASTATIN [Suspect]
     Indication: HYPERLIPIDAEMIA
     Dosage: 20MG HS PO
     Route: 048
     Dates: start: 20020622, end: 20100124
  2. GEMFIBROZIL [Suspect]
     Indication: HYPERTRIGLYCERIDAEMIA
     Dosage: 600MG BID PO
     Route: 048
     Dates: start: 19981116

REACTIONS (5)
  - BLOOD SODIUM DECREASED [None]
  - FALL [None]
  - HYPOTENSION [None]
  - RHABDOMYOLYSIS [None]
  - SEDATION [None]
